FAERS Safety Report 15244508 (Version 1)
Quarter: 2018Q3

REPORT INFORMATION
  Report Type: Spontaneous
  Country: JP (occurrence: JP)
  Receive Date: 20180806
  Receipt Date: 20180806
  Transmission Date: 20181010
  Serious: Yes (Other)
  Sender: FDA-Public Use
  Company Number: JP-CELGENEUS-JPN-20180801018

PATIENT
  Age: 8 Decade

DRUGS (2)
  1. ALOXI [Concomitant]
     Active Substance: PALONOSETRON HYDROCHLORIDE
     Indication: PROPHYLAXIS OF NAUSEA AND VOMITING
     Dosage: UNKNOWN
     Route: 065
     Dates: start: 20180710
  2. ISTODAX [Suspect]
     Active Substance: ROMIDEPSIN
     Indication: PERIPHERAL T-CELL LYMPHOMA UNSPECIFIED
     Route: 041
     Dates: start: 20180710

REACTIONS (3)
  - Deafness [Recovered/Resolved]
  - Deafness [Recovered/Resolved]
  - Deafness [Recovered/Resolved]

NARRATIVE: CASE EVENT DATE: 20180711
